FAERS Safety Report 6270832-6 (Version None)
Quarter: 2009Q3

REPORT INFORMATION
  Report Type: 
  Country: None (occurrence: None)
  Receive Date: 20090716
  Receipt Date: 20090707
  Transmission Date: 20100115
  Serious: Yes (Other)
  Sender: FDA-Public Use
  Company Number: PHEH2009US06810

PATIENT
  Sex: Female
  Weight: 83.22 kg

DRUGS (5)
  1. GLEEVEC [Suspect]
     Indication: GASTROINTESTINAL STROMAL TUMOUR
     Dosage: 400 MG, QD
     Route: 048
     Dates: start: 20090504, end: 20090623
  2. AVALIDE [Concomitant]
     Dosage: 300 MG, QD
     Route: 048
  3. LEVOTHYROXINE SODIUM [Concomitant]
     Dosage: 100 MCG PER DAY
     Route: 048
  4. METOPROLOL TARTRATE [Concomitant]
     Dosage: 500 MG, BID
     Route: 048
  5. PRAVASTATIN SODIUM [Concomitant]
     Dosage: 20 MG, QHS
     Route: 048

REACTIONS (5)
  - HAEMATOCRIT DECREASED [None]
  - HAEMOGLOBIN DECREASED [None]
  - HEADACHE [None]
  - RED BLOOD CELL COUNT DECREASED [None]
  - SURGERY [None]
